FAERS Safety Report 17799593 (Version 3)
Quarter: 2020Q3

REPORT INFORMATION
  Report Type: Report from Study
  Country: RU (occurrence: RU)
  Receive Date: 20200518
  Receipt Date: 20200622
  Transmission Date: 20201105
  Serious: Yes (Hospitalization)
  Sender: FDA-Public Use
  Company Number: RU-CELGENEUS-RUS-20200503338

PATIENT
  Sex: Male
  Weight: 73 kg

DRUGS (2)
  1. URSODEOXYCHOLIC ACID [Concomitant]
     Active Substance: URSODIOL
     Indication: BLOOD BILIRUBIN INCREASED
     Dosage: 500 MILLIGRAM
     Route: 048
     Dates: start: 20200206, end: 20200303
  2. OZANIMOD. [Suspect]
     Active Substance: OZANIMOD
     Indication: MULTIPLE SCLEROSIS
     Dosage: 1 MILLIGRAM
     Route: 048
     Dates: start: 20161026, end: 20200428

REACTIONS (1)
  - Cardiovascular somatic symptom disorder [Recovered/Resolved]

NARRATIVE: CASE EVENT DATE: 201912
